FAERS Safety Report 12453392 (Version 1)
Quarter: 2016Q2

REPORT INFORMATION
  Report Type: Spontaneous
  Country: DK (occurrence: DE)
  Receive Date: 20160609
  Receipt Date: 20160609
  Transmission Date: 20160815
  Serious: Yes (Hospitalization)
  Sender: FDA-Public Use
  Company Number: DE-FRI-1000083874

PATIENT
  Age: 0 Day
  Sex: Male
  Weight: 2.7 kg

DRUGS (1)
  1. CITALOPRAM [Suspect]
     Active Substance: CITALOPRAM HYDROBROMIDE
     Indication: DEPRESSION
     Dosage: 40 MG
     Route: 063
     Dates: end: 20160123

REACTIONS (8)
  - Exposure during breast feeding [Recovered/Resolved]
  - Opisthotonus [Unknown]
  - Foetal exposure during pregnancy [Recovered/Resolved]
  - Microcephaly [Unknown]
  - Agitation [Unknown]
  - Apnoea [Recovering/Resolving]
  - Oxygen saturation decreased [Recovering/Resolving]
  - Head circumference abnormal [Unknown]

NARRATIVE: CASE EVENT DATE: 20151228
